FAERS Safety Report 16787863 (Version 2)
Quarter: 2023Q4

REPORT INFORMATION
  Report Type: Spontaneous
  Country: PT (occurrence: PT)
  Receive Date: 20190909
  Receipt Date: 20231006
  Transmission Date: 20240110
  Serious: No
  Sender: FDA-Public Use
  Company Number: PT-ABBVIE-19P-130-2848855-00

PATIENT
  Age: 5 Year
  Sex: Female

DRUGS (13)
  1. TIMOLOL [Suspect]
     Active Substance: TIMOLOL
     Indication: Intraocular pressure test abnormal
     Dosage: DOSAGE: 5 MG/ML
     Route: 061
  2. ADALIMUMAB [Suspect]
     Active Substance: ADALIMUMAB
     Indication: Juvenile idiopathic arthritis
     Route: 058
     Dates: start: 2014
  3. ADALIMUMAB [Suspect]
     Active Substance: ADALIMUMAB
     Indication: Uveitis
  4. METHOTREXATE [Suspect]
     Active Substance: METHOTREXATE
     Indication: Juvenile idiopathic arthritis
     Dosage: UP TO 15MG/M2/WEEK
     Route: 048
     Dates: start: 2011
  5. METHOTREXATE [Suspect]
     Active Substance: METHOTREXATE
     Indication: Juvenile idiopathic arthritis
     Route: 058
  6. IBUPROFEN [Suspect]
     Active Substance: IBUPROFEN
     Indication: Juvenile idiopathic arthritis
     Route: 048
     Dates: start: 2010
  7. ACETAZOLAMIDE [Concomitant]
     Active Substance: ACETAZOLAMIDE
     Indication: Glaucoma surgery
     Route: 048
     Dates: start: 2014
  8. LATANOPROST [Concomitant]
     Active Substance: LATANOPROST
     Indication: Glaucoma surgery
     Dosage: DOSAGE: 0.05 MG/ML
     Route: 061
     Dates: start: 2014
  9. BRIMONIDINE [Suspect]
     Active Substance: BRIMONIDINE TARTRATE
     Indication: Intraocular pressure test abnormal
     Dosage: DOSAGE: 2 MG/ML
     Route: 061
  10. DEFLAZACORT [Suspect]
     Active Substance: DEFLAZACORT
     Indication: Juvenile idiopathic arthritis
     Route: 048
     Dates: start: 2011
  11. DEFLAZACORT [Suspect]
     Active Substance: DEFLAZACORT
     Indication: Juvenile idiopathic arthritis
     Dosage: TAPERED DOSE
     Route: 048
  12. BRINZOLAMIDE [Suspect]
     Active Substance: BRINZOLAMIDE
     Indication: Intraocular pressure test abnormal
     Dosage: DOSAGE: 10 MG/ML
     Route: 061
  13. TOCILIZUMAB [Concomitant]
     Active Substance: TOCILIZUMAB
     Indication: Uveitis
     Route: 042

REACTIONS (1)
  - Therapeutic product effect incomplete [Unknown]
